FAERS Safety Report 4640680-9 (Version None)
Quarter: 2005Q2

REPORT INFORMATION
  Report Type: 
  Country: None (occurrence: None)
  Receive Date: 20050419
  Receipt Date: 20050406
  Transmission Date: 20051028
  Serious: Yes (Other)
  Sender: FDA-Public Use
  Company Number: 2005055113

PATIENT
  Age: 57 Year
  Sex: Male

DRUGS (3)
  1. IRINOTECAN HYDROCHLORIDE SOLUTION, STERILE [Suspect]
     Indication: SMALL CELL LUNG CANCER STAGE UNSPECIFIED
     Dosage: 80 MG (DAY 1 + DAY 8)
     Dates: start: 20050221, end: 20050307
  2. CARBOPLATIN [Suspect]
     Indication: SMALL CELL LUNG CANCER STAGE UNSPECIFIED
     Dosage: 250 MG (DAY 1)
     Dates: start: 20050221, end: 20050221
  3. .................. [Concomitant]

REACTIONS (1)
  - INTERSTITIAL LUNG DISEASE [None]
